FAERS Safety Report 18573987 (Version 1)
Quarter: 2020Q4

REPORT INFORMATION
  Report Type: Report from Study
  Country: BR (occurrence: BR)
  Receive Date: 20201203
  Receipt Date: 20201203
  Transmission Date: 20210114
  Serious: Yes (Other)
  Sender: FDA-Public Use
  Company Number: NVSC2020BR318694

PATIENT
  Age: 69 Year
  Sex: Female

DRUGS (2)
  1. KISQALI [Suspect]
     Active Substance: RIBOCICLIB
     Indication: PRODUCT USED FOR UNKNOWN INDICATION
     Dosage: UNK (3 TABLETS A DAY DURING 21 DAYS WITH 7 DAYS BREAK)
     Route: 065
     Dates: start: 20201104
  2. FEMARA [Suspect]
     Active Substance: LETROZOLE
     Indication: PRODUCT USED FOR UNKNOWN INDICATION
     Dosage: UNK (INJECTION)
     Route: 065
     Dates: start: 20201104

REACTIONS (7)
  - Metastases to bone [Not Recovered/Not Resolved]
  - Pyrexia [Recovered/Resolved]
  - Breast mass [Not Recovered/Not Resolved]
  - Immunodeficiency [Unknown]
  - Mental disorder [Unknown]
  - Malaise [Unknown]
  - Cystitis [Not Recovered/Not Resolved]

NARRATIVE: CASE EVENT DATE: 20201119
